FAERS Safety Report 5356748-8 (Version None)
Quarter: 2007Q2

REPORT INFORMATION
  Report Type: 
  Country: None (occurrence: None)
  Receive Date: 20070614
  Receipt Date: 20060601
  Transmission Date: 20071010
  Serious: No
  Sender: FDA-Public Use
  Company Number: US-ASTRAZENECA-2006UW10562

PATIENT
  Age: 66 Year
  Sex: Female
  Weight: 56.7 kg

DRUGS (2)
  1. ATACAND [Suspect]
     Indication: HYPERTENSION
     Route: 048
     Dates: start: 19990101
  2. MULTIVITAMIN [Concomitant]

REACTIONS (2)
  - BLOOD PRESSURE INCREASED [None]
  - VISUAL DISTURBANCE [None]
